FAERS Safety Report 24357151 (Version 1)
Quarter: 2024Q3

REPORT INFORMATION
  Report Type: Spontaneous
  Country: US (occurrence: US)
  Receive Date: 20240924
  Receipt Date: 20240924
  Transmission Date: 20241017
  Serious: No
  Sender: JOHNSON AND JOHNSON
  Company Number: US-JNJFOC-20240935579

PATIENT

DRUGS (3)
  1. PEPCID [Suspect]
     Active Substance: FAMOTIDINE
     Indication: Anaphylactic reaction
     Route: 065
  2. BILASTINE [Concomitant]
     Active Substance: BILASTINE
     Indication: Anaphylactic reaction
     Route: 065
  3. XOLAIR [Concomitant]
     Active Substance: OMALIZUMAB
     Indication: Anaphylactic reaction
     Route: 065

REACTIONS (1)
  - Off label use [Unknown]
